FAERS Safety Report 7116694-6 (Version None)
Quarter: 2010Q4

REPORT INFORMATION
  Report Type: 
  Country: None (occurrence: None)
  Receive Date: 20101122
  Receipt Date: 20101115
  Transmission Date: 20110411
  Serious: Yes (Other)
  Sender: FDA-Public Use
  Company Number: B0685413A

PATIENT
  Sex: Female

DRUGS (1)
  1. ORAXIM [Suspect]
     Indication: PHARYNGITIS
     Route: 048
     Dates: start: 20100513

REACTIONS (3)
  - MONOPLEGIA [None]
  - MOVEMENT DISORDER [None]
  - PAIN [None]
